FAERS Safety Report 12880916 (Version 2)
Quarter: 2016Q4

REPORT INFORMATION
  Report Type: Spontaneous
  Country: BR (occurrence: BR)
  Receive Date: 20161025
  Receipt Date: 20161109
  Transmission Date: 20170207
  Serious: Yes (Other)
  Sender: FDA-Public Use
  Company Number: BR-PFIZER INC-2016491284

PATIENT
  Age: 18 Year
  Sex: Female
  Weight: 90 kg

DRUGS (3)
  1. COSOPT [Concomitant]
     Active Substance: DORZOLAMIDE HYDROCHLORIDE\TIMOLOL MALEATE
     Indication: INTRAOCULAR PRESSURE TEST
     Dosage: 1 DROP IN EACH IN THE MORNING AND ANOTHER AT NIGHT
     Route: 047
     Dates: start: 1993
  2. ALPHAGAN P [Concomitant]
     Active Substance: BRIMONIDINE TARTRATE
     Indication: GLAUCOMA
     Dosage: 1 IN THE MORNING AND ANOTHER AT NIGHT
     Route: 047
     Dates: start: 1993
  3. XALATAN [Suspect]
     Active Substance: LATANOPROST
     Indication: DEVELOPMENTAL GLAUCOMA
     Dosage: 1 DROP IN EACH EYE AT NIGHT
     Route: 047
     Dates: start: 1993

REACTIONS (1)
  - Blindness [Unknown]

NARRATIVE: CASE EVENT DATE: 2011
